FAERS Safety Report 9629371 (Version 1)
Quarter: 2013Q4

REPORT INFORMATION
  Report Type: Spontaneous
  Country: US (occurrence: US)
  Receive Date: 20131017
  Receipt Date: 20131017
  Transmission Date: 20140711
  Serious: No
  Sender: FDA-Public Use
  Company Number: US-ASTRAZENECA-2013SE48152

PATIENT
  Age: 72 Year
  Sex: Female
  Weight: 56.7 kg

DRUGS (5)
  1. CRESTOR [Suspect]
     Route: 048
     Dates: start: 2009
  2. CRESTOR [Suspect]
     Dosage: EVERY OTHER DAY
     Route: 048
  3. MULTIVITAMINS [Concomitant]
  4. CALCIUM [Concomitant]
  5. VITAMIN D [Concomitant]

REACTIONS (2)
  - Alopecia [Unknown]
  - Off label use [Unknown]
